FAERS Safety Report 20964274 (Version 2)
Quarter: 2022Q3

REPORT INFORMATION
  Report Type: Spontaneous
  Country: BR (occurrence: BR)
  Receive Date: 20220615
  Receipt Date: 20220708
  Transmission Date: 20221027
  Serious: No
  Sender: FDA-Public Use
  Company Number: BR-BAXTER-2022BAX011076

PATIENT
  Sex: Female

DRUGS (2)
  1. IRON [Suspect]
     Active Substance: IRON
     Indication: Anaemia
     Dosage: ENDOVENOUS ROUTE, 2 AMPULES DILUTED IN 500 ML OF 0.9% SODIUM CHLORIDE IN 150 MINUTES
     Route: 042
     Dates: start: 20220429
  2. SODIUM CHLORIDE [Suspect]
     Active Substance: SODIUM CHLORIDE
     Indication: Medication dilution
     Dosage: ENDOVENOUS ROUTE, 2 AMPULES DILUTED IN 500 ML OF 0.9% SODIUM CHLORIDE IN 150 MINUTES
     Route: 042
     Dates: start: 20220429

REACTIONS (6)
  - Presyncope [Recovered/Resolved]
  - Pleurisy [Recovered/Resolved]
  - Malaise [Recovered/Resolved]
  - Headache [Recovered/Resolved]
  - Hyperhidrosis [Recovered/Resolved]
  - Hypotension [Recovered/Resolved]

NARRATIVE: CASE EVENT DATE: 20220429
